FAERS Safety Report 5727153-7 (Version None)
Quarter: 2008Q2

REPORT INFORMATION
  Report Type: 
  Country: None (occurrence: None)
  Receive Date: 20080430
  Receipt Date: 20080424
  Transmission Date: 20081010
  Serious: Yes (Hospitalization)
  Sender: FDA-Public Use
  Company Number: THQ2008A00715

PATIENT
  Age: 69 Year
  Sex: Male

DRUGS (2)
  1. LANSOPRAZOLE [Suspect]
     Dosage: (15 MG) PER ORAL
     Route: 048
     Dates: start: 20070622, end: 20070705
  2. PANTOPRAZOLE SODIUM [Suspect]
     Dosage: (40 MG) PER ORAL
     Route: 048

REACTIONS (6)
  - DIARRHOEA [None]
  - GENERAL PHYSICAL CONDITION ABNORMAL [None]
  - HYPONATRAEMIA [None]
  - NAUSEA [None]
  - RENAL FAILURE ACUTE [None]
  - VOMITING [None]
